FAERS Safety Report 17963246 (Version 1)
Quarter: 2020Q2

REPORT INFORMATION
  Report Type: Report from Study
  Country: US (occurrence: US)
  Receive Date: 20200630
  Receipt Date: 20200630
  Transmission Date: 20200714
  Serious: No
  Sender: FDA-Public Use
  Company Number: US-BIOVITRUM-2019US4580

PATIENT
  Age: 49 Year
  Sex: Female

DRUGS (9)
  1. GABAPENTIN. [Concomitant]
     Active Substance: GABAPENTIN
  2. BENADRYL [Concomitant]
     Active Substance: DIPHENHYDRAMINE HYDROCHLORIDE
  3. IBUPROFEN. [Concomitant]
     Active Substance: IBUPROFEN
  4. CYMBALTA [Concomitant]
     Active Substance: DULOXETINE HYDROCHLORIDE
  5. ARAVA [Concomitant]
     Active Substance: LEFLUNOMIDE
  6. KINERET [Suspect]
     Active Substance: ANAKINRA
     Indication: PRODUCT USED FOR UNKNOWN INDICATION
     Route: 058
     Dates: start: 20191203
  7. PREDNISONE. [Concomitant]
     Active Substance: PREDNISONE
  8. SIMVASTATIN. [Concomitant]
     Active Substance: SIMVASTATIN
  9. TRAMADOL. [Concomitant]
     Active Substance: TRAMADOL

REACTIONS (8)
  - Neck pain [Unknown]
  - Myalgia [Unknown]
  - Fatigue [Unknown]
  - Injection site pruritus [Unknown]
  - Paraesthesia [Unknown]
  - Tenderness [Unknown]
  - Injection site urticaria [Unknown]
  - Rash [Unknown]

NARRATIVE: CASE EVENT DATE: 202001
